FAERS Safety Report 5167991-5 (Version None)
Quarter: 2006Q4

REPORT INFORMATION
  Report Type: 
  Country: None (occurrence: None)
  Receive Date: 20061208
  Receipt Date: 20060109
  Transmission Date: 20070319
  Serious: Yes (Other)
  Sender: FDA-Public Use
  Company Number: US-GLAXOSMITHKLINE-A0588337A

PATIENT
  Age: 75 Year
  Sex: Female

DRUGS (3)
  1. AVANDAMET [Suspect]
     Route: 048
  2. GLUCOTROL XL [Concomitant]
  3. MAXZIDE [Concomitant]

REACTIONS (5)
  - FLUID RETENTION [None]
  - MACULAR OEDEMA [None]
  - OEDEMA PERIPHERAL [None]
  - VISUAL DISTURBANCE [None]
  - WEIGHT INCREASED [None]
